FAERS Safety Report 18712320 (Version 1)
Quarter: 2021Q1

REPORT INFORMATION
  Report Type: Spontaneous
  Country: US (occurrence: US)
  Receive Date: 20210107
  Receipt Date: 20210107
  Transmission Date: 20210419
  Serious: Yes (Death, Hospitalization)
  Sender: FDA-Public Use
  Company Number: US-BAYER-2021-011804

PATIENT
  Age: 16 Year
  Sex: Male

DRUGS (7)
  1. PARACETAMOL [Suspect]
     Active Substance: ACETAMINOPHEN
     Route: 048
  2. RIZATRIPTAN. [Suspect]
     Active Substance: RIZATRIPTAN
  3. IBUPROFEN. [Suspect]
     Active Substance: IBUPROFEN
  4. DIPHENHYDRAMINE. [Suspect]
     Active Substance: DIPHENHYDRAMINE
  5. ACETYLSALICYLIC ACID [Suspect]
     Active Substance: ASPIRIN
     Route: 048
  6. CAFFEINE. [Suspect]
     Active Substance: CAFFEINE
  7. NORTRIPTYLINE [Suspect]
     Active Substance: NORTRIPTYLINE

REACTIONS (2)
  - Intentional overdose [Fatal]
  - Toxicity to various agents [Fatal]
